FAERS Safety Report 8977087 (Version 2)
Quarter: 2013Q2

REPORT INFORMATION
  Report Type: Spontaneous
  Country: DE (occurrence: DE)
  Receive Date: 20121219
  Receipt Date: 20130417
  Transmission Date: 20140414
  Serious: Yes (Death, Hospitalization)
  Sender: FDA-Public Use
  Company Number: DE-UCBSA-041865

PATIENT
  Age: 44 Year
  Sex: Female
  Weight: 49 kg

DRUGS (6)
  1. VIMPAT [Suspect]
     Indication: CONVULSION
     Dosage: SAME DOSE AS SYRUP BEFORE, MORNING AND EVENING
     Route: 048
     Dates: end: 2012
  2. VIMPAT [Suspect]
     Indication: EPILEPSY
     Dosage: MORNING, NOON AND EVENING
     Route: 048
     Dates: start: 201204
  3. VIMPAT [Suspect]
     Indication: EPILEPSY
     Dosage: ROUTE: VIA PEG
     Route: 050
  4. LEVETIRACETAM [Suspect]
     Indication: EPILEPSY
     Dosage: AS USED: 15 ML WITH A SOLUTION OF 100 MG/ML, ONCE IN THE  MORNING, ONCE AT NIGHT
     Route: 048
  5. NEXIUM MUPS [Concomitant]
     Dosage: 40 MG, 1/2 TAB EACH, MORNING AND EVENING
  6. MCP [Concomitant]
     Dosage: 4MG/1ML DROPS, MORNING AND EVENING

REACTIONS (10)
  - Death [Fatal]
  - Pneumonia [Unknown]
  - Drug intolerance [Unknown]
  - Adverse drug reaction [Recovered/Resolved]
  - Feeling abnormal [Recovered/Resolved]
  - Tremor [Recovering/Resolving]
  - Drug effect incomplete [Recovered/Resolved]
  - Vomiting [Recovered/Resolved]
  - Gait disturbance [Unknown]
  - Blood sodium decreased [Recovering/Resolving]
